FAERS Safety Report 10514058 (Version 2)
Quarter: 2014Q4

REPORT INFORMATION
  Report Type: Spontaneous
  Country: IT (occurrence: IT)
  Receive Date: 20141013
  Receipt Date: 20141013
  Transmission Date: 20150528
  Serious: Yes (Hospitalization)
  Sender: FDA-Public Use
  Company Number: IT-TEVA-513366ISR

PATIENT
  Age: 57 Year
  Sex: Male

DRUGS (7)
  1. SERENASE - 10 MG/ML GOCCE ORALI, SOLUZIONE [Suspect]
     Active Substance: HALOPERIDOL
     Indication: DRUG ABUSE
     Dosage: 10 GTT DAILY; 15 ML TOTAL, ORAL DROPS, SOLUTION
     Route: 048
     Dates: start: 20140921, end: 20140921
  2. LORAZEPAM. [Suspect]
     Active Substance: LORAZEPAM
     Indication: DRUG ABUSE
     Dosage: 10 GTT DAILY; 10 ML TOTAL, ORAL DROPS, SOLUTION
     Route: 048
     Dates: start: 20140921, end: 20140921
  3. ORUDIS [Concomitant]
     Active Substance: KETOPROFEN
     Indication: PRODUCT USED FOR UNKNOWN INDICATION
     Route: 048
  4. SOLDESAM - 0,2% GOCCE ORALI, SOLUZIONE [Concomitant]
     Indication: PRODUCT USED FOR UNKNOWN INDICATION
     Dosage: ORAL DROPS, SOLUTION
     Route: 048
  5. OXYCONTIN - COMPRESSE A RILASCIO PROLUNGATO 40 MG [Concomitant]
     Indication: PRODUCT USED FOR UNKNOWN INDICATION
     Dosage: 40 MG
     Route: 048
  6. TARGIN - 40 MG/20 MG COMPRESSE A RILASCIO PROLUNGATO [Concomitant]
     Indication: PRODUCT USED FOR UNKNOWN INDICATION
     Dosage: 40 MG
     Route: 048
  7. EFFENTORA - 800 MCG COMPRESSA OROSOLUBILE [Concomitant]
     Indication: PRODUCT USED FOR UNKNOWN INDICATION
     Dosage: 32000 MCG, ORODISPERSIBLE TABLET

REACTIONS (3)
  - Intentional self-injury [Recovered/Resolved]
  - Agitation [Recovered/Resolved]
  - Drug abuse [Recovered/Resolved]

NARRATIVE: CASE EVENT DATE: 20140921
